FAERS Safety Report 10369380 (Version 1)
Quarter: 2014Q1

REPORT INFORMATION
  Report Type: Spontaneous
  Country: US (occurrence: None)
  Receive Date: 20140306
  Receipt Date: 20140306
  Transmission Date: 20141002
  Serious: Yes (Other)
  Sender: FDA-Public Use
  Company Number: 163-21880-13080517

PATIENT
  Age: 74 Year
  Sex: Female
  Weight: 80.29 kg

DRUGS (7)
  1. REVLIMID (LENALIDOMIDE) (25 MILLIGRAM, CAPSULES) [Suspect]
     Indication: PLASMA CELL MYELOMA
     Dosage: 25 MG, 21 IN 21 D, PO
     Route: 048
     Dates: start: 20130420, end: 20130705
  2. DEXAMETHASONE (DEXAMETHASONE) (4 MILLIGRAM, UNKNOWN) [Concomitant]
  3. ALENDRONATE (ALENDRONATE SODIUM) (TABLETS) [Concomitant]
  4. CEPHALEXIN (CEFALEXIN) (TABLETS) [Concomitant]
  5. FEXOFENADINE (FEXOFENADINE) (TABLETS) [Concomitant]
  6. NIFEDIPINE (NIFEDIPINE) (TABLETS) [Concomitant]
  7. OXYCODONE/ACETAMINOPHEN (OXCOCET) (TABLETS) [Concomitant]

REACTIONS (3)
  - Pancytopenia [None]
  - White blood cell count decreased [None]
  - Cellulitis [None]
